FAERS Safety Report 4927832-5 (Version None)
Quarter: 2006Q1

REPORT INFORMATION
  Report Type: 
  Country: None (occurrence: None)
  Receive Date: 20060222
  Receipt Date: 20060213
  Transmission Date: 20060701
  Serious: Yes (Other)
  Sender: FDA-Public Use
  Company Number: 144593USA

PATIENT
  Age: 48 Year
  Sex: Female

DRUGS (1)
  1. TAMOXIFEN CITRATE [Suspect]
     Indication: MASTECTOMY
     Dosage: 10 MILLIGRAM BID ORAL
     Route: 048
     Dates: start: 20050426, end: 20060201

REACTIONS (9)
  - ARTHRALGIA [None]
  - BONE DENSITY DECREASED [None]
  - BURNING SENSATION [None]
  - FATIGUE [None]
  - HEADACHE [None]
  - OESTRADIOL INCREASED [None]
  - PAIN [None]
  - PITUITARY TUMOUR BENIGN [None]
  - SOMNOLENCE [None]
